FAERS Safety Report 14614768 (Version 1)
Quarter: 2018Q1

REPORT INFORMATION
  Report Type: Spontaneous
  Country: FR (occurrence: FR)
  Receive Date: 20180308
  Receipt Date: 20180308
  Transmission Date: 20180509
  Serious: Yes (Other)
  Sender: FDA-Public Use
  Company Number: FR-MERCK KGAA-2043326

PATIENT
  Age: 52 Year
  Sex: Female

DRUGS (1)
  1. NOVOTHYROX [Suspect]
     Active Substance: LEVOTHYROXINE SODIUM
     Indication: HYPOTHYROIDISM
     Dates: start: 201707

REACTIONS (23)
  - Anxiety [None]
  - Arthralgia [None]
  - Gastrointestinal disorder [None]
  - Visual impairment [None]
  - Alopecia [None]
  - Hot flush [None]
  - Abdominal discomfort [None]
  - Abdominal pain upper [None]
  - Weight increased [None]
  - Arthropathy [None]
  - Myalgia [None]
  - Headache [None]
  - Aggression [None]
  - Abdominal distension [None]
  - General physical health deterioration [None]
  - Muscular weakness [None]
  - Amnesia [None]
  - Weight decreased [None]
  - Eating disorder [None]
  - Dizziness [None]
  - Dehydration [None]
  - Fatigue [None]
  - Anxiety disorder [None]

NARRATIVE: CASE EVENT DATE: 2017
